FAERS Safety Report 16257061 (Version 1)
Quarter: 2019Q2

REPORT INFORMATION
  Report Type: Report from Study
  Country: US (occurrence: US)
  Receive Date: 20190430
  Receipt Date: 20190430
  Transmission Date: 20190711
  Serious: Yes (Death, Life-Threatening, Hospitalization, Other)
  Sender: FDA-Public Use
  Company Number: US-BRISTOL-MYERS SQUIBB COMPANY-BMS-2019-040650

PATIENT
  Sex: Male
  Weight: 80.27 kg

DRUGS (2)
  1. PACLITAXEL ALBUMIN [Suspect]
     Active Substance: PACLITAXEL
     Indication: NEOPLASM MALIGNANT
     Dosage: 100 MILLIGRAM, QWK
     Route: 042
     Dates: start: 20180907, end: 20181102
  2. NIVOLUMAB [Suspect]
     Active Substance: NIVOLUMAB
     Indication: NEOPLASM MALIGNANT
     Dosage: 360 MILLIGRAM, Q3WK
     Route: 042
     Dates: start: 20180907, end: 20181102

REACTIONS (8)
  - Metabolic acidosis [Unknown]
  - Septic shock [Unknown]
  - Pancytopenia [Unknown]
  - Ischaemia [Unknown]
  - Acute respiratory failure [Unknown]
  - Acute kidney injury [Unknown]
  - Troponin increased [Unknown]
  - Death [Fatal]
